FAERS Safety Report 25803622 (Version 2)
Quarter: 2025Q4

REPORT INFORMATION
  Report Type: Spontaneous
  Country: US (occurrence: US)
  Receive Date: 20250915
  Receipt Date: 20251015
  Transmission Date: 20260119
  Serious: No
  Sender: CALLIDITAS THERAPEUTICS AB
  Company Number: US-Calliditas-2025CAL02754

PATIENT
  Age: 51 Year
  Sex: Male

DRUGS (7)
  1. TARPEYO [Suspect]
     Active Substance: BUDESONIDE
     Indication: IgA nephropathy
     Route: 048
     Dates: start: 20241126
  2. TARPEYO [Suspect]
     Active Substance: BUDESONIDE
     Indication: IgA nephropathy
     Route: 048
     Dates: start: 2025
  3. AMLODIPINE BESYLATE AND BENAZEPRIL HYDROCHLORIDE [Concomitant]
     Active Substance: AMLODIPINE BESYLATE\BENAZEPRIL HYDROCHLORIDE
  4. ATORVASTATIN [Concomitant]
     Active Substance: ATORVASTATIN
  5. CLONAZEPAM [Concomitant]
     Active Substance: CLONAZEPAM
  6. HYDROCHLOROTHIAZIDE [Concomitant]
     Active Substance: HYDROCHLOROTHIAZIDE
  7. TESTOSTERONE [Concomitant]
     Active Substance: TESTOSTERONE

REACTIONS (5)
  - Back pain [Not Recovered/Not Resolved]
  - Rash macular [Not Recovered/Not Resolved]
  - Herpes zoster [Recovering/Resolving]
  - Hyperaesthesia [Recovering/Resolving]
  - Fatigue [Not Recovered/Not Resolved]
